FAERS Safety Report 8205983-X (Version None)
Quarter: 2012Q1

REPORT INFORMATION
  Report Type: 
  Country: None (occurrence: None)
  Receive Date: 20120313
  Receipt Date: 20120309
  Transmission Date: 20120608
  Serious: Yes (Death, Other)
  Sender: FDA-Public Use
  Company Number: US-TEVA-327288USA

PATIENT
  Age: 48 Year
  Sex: Female

DRUGS (3)
  1. AMPHETAMINE AND DEXTROAMPHETAMINE SALTS [Suspect]
  2. BUPRENORPHINE [Suspect]
  3. METHYLPHENIDATE HCL [Suspect]

REACTIONS (4)
  - LOSS OF CONSCIOUSNESS [None]
  - VOMITING [None]
  - DEATH [None]
  - ABDOMINAL PAIN UPPER [None]
